FAERS Safety Report 4507032-3 (Version None)
Quarter: 2004Q4

REPORT INFORMATION
  Report Type: 
  Country: None (occurrence: None)
  Receive Date: 20041122
  Receipt Date: 20041115
  Transmission Date: 20050328
  Serious: Yes (Hospitalization)
  Sender: FDA-Public Use
  Company Number: JP-MERCK-0411USA02921

PATIENT
  Age: 45 Year
  Sex: Male

DRUGS (3)
  1. DECADRON [Suspect]
     Indication: CHOROIDITIS
     Route: 048
  2. DECADRON [Suspect]
     Route: 048
  3. DECADRON [Suspect]
     Indication: CHOROIDITIS
     Route: 047

REACTIONS (2)
  - DETACHMENT OF RETINAL PIGMENT EPITHELIUM [None]
  - RETINAL DETACHMENT [None]
